FAERS Safety Report 5530022-9 (Version None)
Quarter: 2007Q4

REPORT INFORMATION
  Report Type: 
  Country: None (occurrence: None)
  Receive Date: 20071127
  Receipt Date: 20071116
  Transmission Date: 20080405
  Serious: Yes (Hospitalization)
  Sender: FDA-Public Use
  Company Number: 2007BI023125

PATIENT
  Age: 65 Year
  Sex: Male

DRUGS (2)
  1. NATALIZUMAB [Suspect]
     Indication: MULTIPLE SCLEROSIS
     Dosage: 300 MG; QM; IV
     Route: 042
     Dates: start: 20061212
  2. AVONEX [Concomitant]

REACTIONS (2)
  - ARTERIOSCLEROSIS CORONARY ARTERY [None]
  - VASCULAR GRAFT [None]
